FAERS Safety Report 14578096 (Version 1)
Quarter: 2018Q1

REPORT INFORMATION
  Report Type: Spontaneous
  Country: CN (occurrence: CN)
  Receive Date: 20180227
  Receipt Date: 20180227
  Transmission Date: 20180509
  Serious: Yes (Other)
  Sender: FDA-Public Use
  Company Number: CN-PURACAP PHARMACEUTICAL LLC-2018EPC00088

PATIENT
  Age: 83 Year
  Sex: Male

DRUGS (21)
  1. ACARBOSE. [Concomitant]
     Active Substance: ACARBOSE
     Dosage: 50 MG, 3X/DAY
     Route: 048
  2. AMBROXOL HYDROCHLORIDE [Concomitant]
     Active Substance: AMBROXOL HYDROCHLORIDE
     Dosage: 30 MG, 3X/DAY
     Route: 048
  3. IRBESARTAN. [Concomitant]
     Active Substance: IRBESARTAN
  4. AMBROXOL HYDROCHLORIDE [Concomitant]
     Active Substance: AMBROXOL HYDROCHLORIDE
     Dosage: 60 MG, 3X/DAY
     Route: 042
  5. GLICLAZIDE [Concomitant]
     Active Substance: GLICLAZIDE
     Dosage: 60 MG, 1X/DAY
     Route: 048
  6. ESOMEPRAZOLE [Concomitant]
     Active Substance: ESOMEPRAZOLE
     Dosage: 20 MG, 1X/DAY
     Route: 048
  7. AMLODIPINE BESYLATE. [Concomitant]
     Active Substance: AMLODIPINE BESYLATE
     Dosage: 5 MG, 1X/DAY
     Route: 048
  8. CEFOPERAZONE-TAZOBACTAM [Suspect]
     Active Substance: CEFOPERAZONE\TAZOBACTAM SODIUM
     Indication: PNEUMONIA
     Dosage: 2 G, Q8H
     Route: 041
  9. ETIMICIN SULPHATE [Concomitant]
     Indication: PNEUMONIA
     Dosage: 0.2 G, 1X/DAY
     Route: 041
  10. INSULIN [Concomitant]
     Active Substance: INSULIN NOS
     Dosage: 6 U, 1X/DAY
     Route: 065
  11. HALOPERIDOL. [Concomitant]
     Active Substance: HALOPERIDOL
     Route: 065
  12. INSULIN [Concomitant]
     Active Substance: INSULIN NOS
     Dosage: 6 U, 1X/DAY
     Route: 041
  13. DOXYCYCLINE HYCLATE. [Suspect]
     Active Substance: DOXYCYCLINE HYCLATE
     Indication: PNEUMONIA
     Dosage: 0.2 G, 1X/DAY
     Route: 041
  14. CEFOTIAM [Concomitant]
     Active Substance: CEFOTIAM
     Route: 065
  15. TIAPRID [Concomitant]
     Active Substance: TIAPRIDE HYDROCHLORIDE
     Route: 065
  16. GLICLAZIDE [Concomitant]
     Active Substance: GLICLAZIDE
     Dosage: 30 MG, 1X/DAY
     Route: 048
  17. CLOPIDOGREL BISULPHATE [Concomitant]
     Active Substance: CLOPIDOGREL BISULFATE
     Dosage: 75 MG, 1X/DAY
     Route: 048
  18. INSULIN [Concomitant]
     Active Substance: INSULIN NOS
     Dosage: 8 U, 1X/DAY
     Route: 065
  19. BIFIDOBACTERIUM [Concomitant]
     Active Substance: BIFIDOBACTERIUM LONGUM
     Dosage: 0.7 G, 3X/DAY
     Route: 048
  20. VINPOCETINE [Concomitant]
     Active Substance: VINPOCETINE
     Route: 065
  21. ALPROSTADIL. [Concomitant]
     Active Substance: ALPROSTADIL
     Route: 065

REACTIONS (2)
  - Drug interaction [Recovered/Resolved]
  - Coagulopathy [Recovered/Resolved]

NARRATIVE: CASE EVENT DATE: 2016
